FAERS Safety Report 7721800-6 (Version None)
Quarter: 2011Q3

REPORT INFORMATION
  Report Type: 
  Country: None (occurrence: None)
  Receive Date: 20110825
  Receipt Date: 20110822
  Transmission Date: 20111222
  Serious: No
  Sender: FDA-Public Use
  Company Number: 15955529

PATIENT
  Age: 66 Year
  Sex: Female

DRUGS (12)
  1. DOLIPRANE (ACETAMINOPHEN) [Concomitant]
  2. VITAMIN D [Concomitant]
  3. REVIA [Suspect]
     Indication: ALCOHOLISM
     Dosage: 1 DOSAGE FORM, ORAL
     Route: 048
     Dates: start: 20110726
  4. OXAZEPAM [Concomitant]
  5. VITAMIN B1 (VITAMIN B1) [Concomitant]
  6. VITAMIN B6 [Concomitant]
  7. FLECTOR [Concomitant]
  8. NOCTAMIDE (LORMETAZEPAM) [Concomitant]
  9. NEXIUM [Concomitant]
  10. CALCIUM CARBONATE [Concomitant]
  11. AOTAL  (ACAMPROSTATE) [Concomitant]
  12. IXPRIM (TRAMADOL HCL + ACETAMINOPHEN) [Suspect]
     Indication: ARTHRALGIA
     Dosage: 1 CDOSAGE FORM 3/1 DAY, ORAL
     Route: 048
     Dates: start: 20110616

REACTIONS (11)
  - MIOSIS [None]
  - PALLOR [None]
  - MALAISE [None]
  - DRUG WITHDRAWAL SYNDROME [None]
  - CHEST PAIN [None]
  - MYALGIA [None]
  - CONFUSIONAL STATE [None]
  - CHILLS [None]
  - FEELING COLD [None]
  - SOMNOLENCE [None]
  - BLOOD PRESSURE INCREASED [None]
